FAERS Safety Report 6626567-0 (Version None)
Quarter: 2010Q1

REPORT INFORMATION
  Report Type: 
  Country: None (occurrence: None)
  Receive Date: 20100309
  Receipt Date: 20100309
  Transmission Date: 20100710
  Serious: Yes (Other)
  Sender: FDA-Public Use
  Company Number: None

PATIENT
  Age: 101 Year
  Sex: Female
  Weight: 60.8 kg

DRUGS (1)
  1. CIPRO [Suspect]
     Indication: ABDOMINAL PAIN
     Dosage: CIPRO 400 MG 912 IV
     Route: 042
     Dates: start: 20100308

REACTIONS (2)
  - ERYTHEMA [None]
  - PRURITUS [None]
